FAERS Safety Report 10006643 (Version 2)
Quarter: 2014Q2

REPORT INFORMATION
  Report Type: Spontaneous
  Country: US (occurrence: US)
  Receive Date: 20140313
  Receipt Date: 20140430
  Transmission Date: 20141212
  Serious: No
  Sender: FDA-Public Use
  Company Number: US-PFIZER INC-2014070475

PATIENT
  Age: 76 Year
  Sex: Female

DRUGS (1)
  1. SUTENT [Suspect]
     Indication: GASTROINTESTINAL STROMAL TUMOUR
     Dosage: 50 MG, DAILY
     Route: 048
     Dates: start: 2013

REACTIONS (6)
  - Fatigue [Unknown]
  - Contusion [Unknown]
  - Dry skin [Unknown]
  - Skin atrophy [Unknown]
  - Feeling cold [Unknown]
  - Hypoaesthesia [Unknown]
